FAERS Safety Report 5166847-1 (Version None)
Quarter: 2006Q4

REPORT INFORMATION
  Report Type: 
  Country: None (occurrence: None)
  Receive Date: 20061204
  Receipt Date: 20061204
  Transmission Date: 20070319
  Serious: Yes (Life-Threatening, Hospitalization)
  Sender: FDA-Public Use
  Company Number: None

PATIENT
  Age: 48 Year
  Sex: Female
  Weight: 56.6996 kg

DRUGS (1)
  1. NUVARING [Suspect]
     Indication: UTERINE CYST
     Dosage: ONE CYCLE 28 DAYS VAG
     Route: 067
     Dates: start: 20060625, end: 20060709

REACTIONS (1)
  - PULMONARY EMBOLISM [None]
